FAERS Safety Report 9825084 (Version 1)
Quarter: 2013Q4

REPORT INFORMATION
  Report Type: Spontaneous
  Country: US (occurrence: None)
  Receive Date: 20131031
  Receipt Date: 20131031
  Transmission Date: 20140711
  Serious: Yes (Other)
  Sender: FDA-Public Use
  Company Number: 1580607

PATIENT
  Age: 56 Year
  Sex: Female

DRUGS (1)
  1. DOBUTAMINE [Suspect]
     Route: 042
     Dates: start: 20130125

REACTIONS (1)
  - Drug ineffective [None]
